FAERS Safety Report 15043313 (Version 1)
Quarter: 2018Q2

REPORT INFORMATION
  Report Type: Report from Study
  Country: DE (occurrence: DE)
  Receive Date: 20180621
  Receipt Date: 20180621
  Transmission Date: 20180711
  Serious: Yes (Congenital Anomaly)
  Sender: FDA-Public Use
  Company Number: DE-TEVA-2018-DE-909543

PATIENT

DRUGS (5)
  1. METRONIDAZOLE. [Concomitant]
     Active Substance: METRONIDAZOLE
     Route: 064
  2. LEVOTHYROXINE. [Concomitant]
     Active Substance: LEVOTHYROXINE
     Route: 064
  3. SUMATRIPTAN. [Suspect]
     Active Substance: SUMATRIPTAN
     Indication: MIGRAINE
     Route: 064
  4. METOCLOPRAMIDE. [Concomitant]
     Active Substance: METOCLOPRAMIDE
     Route: 064
  5. PARACETAMOL [Concomitant]
     Active Substance: ACETAMINOPHEN
     Dosage: THE MOTHER RECEIVED PARACETAMOL DURING 1-3 TRIMESTER
     Route: 064

REACTIONS (2)
  - Maternal exposure during pregnancy [Unknown]
  - Microcephaly [Unknown]
